FAERS Safety Report 5645751-6 (Version None)
Quarter: 2008Q1

REPORT INFORMATION
  Report Type: 
  Country: None (occurrence: None)
  Receive Date: 20080229
  Receipt Date: 20080218
  Transmission Date: 20080703
  Serious: Yes (Life-Threatening, Hospitalization)
  Sender: FDA-Public Use
  Company Number: US-PFIZER INC-2007091933

PATIENT
  Sex: Male
  Weight: 92.5 kg

DRUGS (1)
  1. SUTENT [Suspect]
     Indication: PROSTATE CANCER
     Dosage: DAILY DOSE:50MG
     Route: 048

REACTIONS (3)
  - PAIN [None]
  - PULMONARY THROMBOSIS [None]
  - PYREXIA [None]
